FAERS Safety Report 19067837 (Version 3)
Quarter: 2023Q2

REPORT INFORMATION
  Report Type: Spontaneous
  Country: ES (occurrence: ES)
  Receive Date: 20210329
  Receipt Date: 20230614
  Transmission Date: 20230722
  Serious: Yes (Other)
  Sender: FDA-Public Use
  Company Number: ES-OTSUKA-2021_007126

PATIENT
  Age: 44 Year
  Sex: Male

DRUGS (14)
  1. LORAZEPAM [Suspect]
     Active Substance: LORAZEPAM
     Dosage: 1 MG, TID (8H QD)
     Route: 065
  2. LORAZEPAM [Suspect]
     Active Substance: LORAZEPAM
     Dosage: 1 MG, 3X/DAY (1MG/8H DAILY )
     Route: 065
     Dates: start: 20131002, end: 20150128
  3. LORAZEPAM [Suspect]
     Active Substance: LORAZEPAM
     Dosage: 2 MG, DAILY (2 MG/8H DAILY )
     Route: 065
     Dates: start: 20150128, end: 20210113
  4. LORAZEPAM [Suspect]
     Active Substance: LORAZEPAM
     Dosage: 1 MG, 3X/DAY (1 MG/8H DAILY )
     Route: 065
     Dates: start: 20210113
  5. ABILIFY [Suspect]
     Active Substance: ARIPIPRAZOLE
     Indication: Depression
     Dosage: 15 MG, QD (0-1-0)
     Route: 065
  6. ABILIFY [Suspect]
     Active Substance: ARIPIPRAZOLE
     Indication: Anxiety
     Dosage: 10 MG, DAILY
     Route: 065
     Dates: end: 20140521
  7. ABILIFY [Suspect]
     Active Substance: ARIPIPRAZOLE
     Indication: Paranoid personality disorder
     Dosage: 15 MG, DAILY
     Route: 065
     Dates: end: 20141201
  8. ABILIFY [Suspect]
     Active Substance: ARIPIPRAZOLE
     Dosage: 10 MG, DAILY
     Route: 065
     Dates: start: 20141201, end: 20150313
  9. ABILIFY [Suspect]
     Active Substance: ARIPIPRAZOLE
     Dosage: 10 MG, DAILY
     Route: 065
     Dates: start: 20150526, end: 20160113
  10. ABILIFY [Suspect]
     Active Substance: ARIPIPRAZOLE
     Dosage: 15 MG, DAILY
     Route: 065
     Dates: start: 20160113, end: 202012
  11. RIVOTRIL [Suspect]
     Active Substance: CLONAZEPAM
     Dosage: 0.5 MG, 3X/DAY EVERY 8 HOURS
     Route: 065
     Dates: start: 20131017
  12. AKINETON [Suspect]
     Active Substance: BIPERIDEN HYDROCHLORIDE
     Dosage: 2 MG, 1X/DAY (MORNING)
     Route: 065
     Dates: start: 20181108
  13. DEXKETOPROFEN [Concomitant]
     Active Substance: DEXKETOPROFEN
     Dosage: 25 MG
     Route: 065
  14. METAMIZOLE [Concomitant]
     Active Substance: METAMIZOLE
     Dosage: 575 MG
     Route: 065

REACTIONS (26)
  - Mental disability [Unknown]
  - Compulsive sexual behaviour [Unknown]
  - Depressed level of consciousness [Recovering/Resolving]
  - Depressed mood [Unknown]
  - Anxiety [Unknown]
  - Drug ineffective [Unknown]
  - Salivary hypersecretion [Unknown]
  - Intentional overdose [Unknown]
  - Amnesia [Unknown]
  - Impulse-control disorder [Recovering/Resolving]
  - Persecutory delusion [Unknown]
  - Discomfort [Unknown]
  - Aggression [Unknown]
  - Agitation [Unknown]
  - Paranoid personality disorder [Unknown]
  - Delusion [Unknown]
  - Hallucination [Unknown]
  - Depression [Unknown]
  - Anhedonia [Unknown]
  - Dependence [Recovering/Resolving]
  - Insomnia [Unknown]
  - Neck pain [Unknown]
  - Pyramidal tract syndrome [Unknown]
  - Suicidal ideation [Unknown]
  - Irritability [Unknown]
  - Dysphoria [Unknown]

NARRATIVE: CASE EVENT DATE: 20131002
